FAERS Safety Report 9158192 (Version 1)
Quarter: 2013Q1

REPORT INFORMATION
  Report Type: Spontaneous
  Country: US (occurrence: US)
  Receive Date: 20130312
  Receipt Date: 20130312
  Transmission Date: 20140127
  Serious: No
  Sender: FDA-Public Use
  Company Number: US-BAUSCH-BL-2012-000834

PATIENT
  Age: 32 Year
  Sex: Female

DRUGS (2)
  1. BACITRACIN ZINC AND POLYMYXIN B SULFATE [Suspect]
     Indication: SKIN LESION
     Dosage: ONE DOSAGE FORM UNDER RIGHT EYE ONCE
     Route: 047
     Dates: start: 20120824, end: 20120824
  2. BACITRACIN ZINC AND POLYMYXIN B SULFATE [Suspect]
     Indication: OFF LABEL USE

REACTIONS (2)
  - Hypersensitivity [Not Recovered/Not Resolved]
  - Off label use [Recovered/Resolved]
